FAERS Safety Report 21142083 (Version 1)
Quarter: 2022Q3

REPORT INFORMATION
  Report Type: Report from Study
  Country: US (occurrence: US)
  Receive Date: 20220728
  Receipt Date: 20220728
  Transmission Date: 20221027
  Serious: Yes (Other)
  Sender: FDA-Public Use
  Company Number: US-GLAXOSMITHKLINE-US2022AMR110558

PATIENT

DRUGS (1)
  1. NIRAPARIB [Suspect]
     Active Substance: NIRAPARIB
     Indication: Ovarian cancer
     Dosage: 200 MG, QD
     Dates: start: 20191120, end: 202203

REACTIONS (4)
  - Malignant neoplasm progression [Unknown]
  - BRCA1 gene mutation [Unknown]
  - HRD gene mutation assay positive [Unknown]
  - Therapy cessation [Unknown]
